FAERS Safety Report 12197855 (Version 1)
Quarter: 2016Q1

REPORT INFORMATION
  Report Type: Spontaneous
  Country: US (occurrence: None)
  Receive Date: 20160321
  Receipt Date: 20160321
  Transmission Date: 20160526
  Serious: No
  Sender: FDA-Public Use
  Company Number: None

PATIENT
  Age: 88 Year
  Sex: Male
  Weight: 79.38 kg

DRUGS (10)
  1. MIRTAZIPINE [Concomitant]
     Active Substance: MIRTAZAPINE
  2. RED YEAST RICE [Concomitant]
     Active Substance: DIETARY SUPPLEMENT
  3. CALCIUM [Concomitant]
     Active Substance: CALCIUM
  4. VIT BCOMPLEX [Concomitant]
  5. VITAMIN B12 [Concomitant]
     Active Substance: CYANOCOBALAMIN
  6. MAGNESIUM [Concomitant]
     Active Substance: MAGNESIUM
  7. PLAVIX [Concomitant]
     Active Substance: CLOPIDOGREL BISULFATE
  8. RAPAFLO [Concomitant]
     Active Substance: SILODOSIN
  9. FISH OIL [Concomitant]
     Active Substance: FISH OIL
  10. TAMSULOSIN [Suspect]
     Active Substance: TAMSULOSIN
     Indication: BENIGN PROSTATIC HYPERPLASIA
     Route: 048
     Dates: start: 20160225, end: 20160307

REACTIONS (2)
  - Sleep disorder [None]
  - Tinnitus [None]

NARRATIVE: CASE EVENT DATE: 20160227
